FAERS Safety Report 20082372 (Version 1)
Quarter: 2021Q4

REPORT INFORMATION
  Report Type: Spontaneous
  Country: US (occurrence: US)
  Receive Date: 20211117
  Receipt Date: 20211117
  Transmission Date: 20220303
  Serious: No
  Sender: FDA-Public Use
  Company Number: ENDG21-05067

PATIENT
  Sex: Male

DRUGS (2)
  1. BOSENTAN [Suspect]
     Active Substance: BOSENTAN
     Indication: Product used for unknown indication
     Dosage: UNK UNKNOWN, UNKNOWN
     Route: 065
  2. BOSENTAN [Suspect]
     Active Substance: BOSENTAN
     Dosage: DOSE LOWERED
     Route: 065

REACTIONS (3)
  - Liver function test increased [Unknown]
  - Retching [Unknown]
  - Off label use [Not Recovered/Not Resolved]
